FAERS Safety Report 14268779 (Version 1)
Quarter: 2017Q4

REPORT INFORMATION
  Report Type: Spontaneous
  Country: US (occurrence: US)
  Receive Date: 20171211
  Receipt Date: 20171211
  Transmission Date: 20180321
  Serious: Yes (Other)
  Sender: FDA-Public Use
  Company Number: US-PFIZER INC-2017526963

PATIENT
  Age: 13 Year
  Sex: Female
  Weight: 63.5 kg

DRUGS (3)
  1. IRON [Concomitant]
     Active Substance: IRON
     Indication: ANAEMIA
     Dosage: 325 MG, 1X/DAY
     Dates: start: 201612
  2. ZOLOFT [Suspect]
     Active Substance: SERTRALINE HYDROCHLORIDE
     Indication: DEPRESSION
     Dosage: 50 MG, 1X/DAY
     Dates: start: 20170623
  3. ZOLOFT [Suspect]
     Active Substance: SERTRALINE HYDROCHLORIDE
     Indication: ANXIETY
     Dosage: 25 MG, DAILY
     Dates: start: 20170610

REACTIONS (2)
  - Colitis ulcerative [Not Recovered/Not Resolved]
  - Pancreatitis [Recovered/Resolved]

NARRATIVE: CASE EVENT DATE: 20170701
